FAERS Safety Report 8887841 (Version 1)
Quarter: 2012Q4

REPORT INFORMATION
  Report Type: Spontaneous
  Country: US (occurrence: None)
  Receive Date: 20121101
  Receipt Date: 20121101
  Transmission Date: 20130627
  Serious: No
  Sender: FDA-Public Use
  Company Number: None

PATIENT
  Age: 82 Year
  Sex: Male
  Weight: 101.8 kg

DRUGS (1)
  1. WARFARIN [Suspect]
     Dosage: 5 MG EVERY DAY PO
     Route: 048
     Dates: start: 20110505, end: 20120920

REACTIONS (5)
  - Epistaxis [None]
  - International normalised ratio increased [None]
  - No therapeutic response [None]
  - Treatment noncompliance [None]
  - Incorrect dose administered [None]
